FAERS Safety Report 8466817 (Version 3)
Quarter: 2012Q4

REPORT INFORMATION
  Report Type: 
  Country: US (occurrence: US)
  Receive Date: 20120320
  Receipt Date: 20120917
  Transmission Date: 20130627
  Serious: Yes (Hospitalization)
  Sender: FDA-Public Use
  Company Number: US-BAYER-2012-024538

PATIENT
  Age: 42 Year
  Sex: Female
  Weight: 58.05 kg

DRUGS (3)
  1. OCELLA [Suspect]
     Indication: CONTRACEPTION
     Dosage: UNK
     Dates: start: 200907, end: 201003
  2. CABERGOLINE [Concomitant]
     Indication: PITUITARY TUMOUR
     Dosage: 0.5 mg, Take ? tablet 2 times a week.
     Route: 048
     Dates: start: 20080520, end: 201105
  3. CABERGOLINE [Concomitant]
     Indication: PROLACTINOMA

REACTIONS (2)
  - Pulmonary embolism [None]
  - Pain [None]
